FAERS Safety Report 9122067 (Version 2)
Quarter: 2013Q2

REPORT INFORMATION
  Report Type: Spontaneous
  Country: IT (occurrence: IT)
  Receive Date: 20130114
  Receipt Date: 20130404
  Transmission Date: 20140414
  Serious: Yes (Other)
  Sender: FDA-Public Use
  Company Number: PHHY2013IT002770

PATIENT
  Sex: Male

DRUGS (3)
  1. ZOMETA [Suspect]
     Dosage: UNK UKN, UNK
     Dates: start: 20020222, end: 20050606
  2. AREDIA [Suspect]
     Indication: PLASMA CELL MYELOMA
     Dosage: 90 MG MONTHLY
     Route: 042
     Dates: start: 19990719, end: 20011207
  3. AREDIA [Suspect]
     Dosage: UNK UKN, UNK
     Dates: start: 20050708, end: 20050929

REACTIONS (1)
  - Osteonecrosis of jaw [Unknown]
